FAERS Safety Report 5612209-X (Version None)
Quarter: 2008Q1

REPORT INFORMATION
  Report Type: 
  Country: None (occurrence: None)
  Receive Date: 20080131
  Receipt Date: 20080131
  Transmission Date: 20080703
  Serious: Yes (Other)
  Sender: FDA-Public Use
  Company Number: None

PATIENT
  Age: 34 Year
  Sex: Male
  Weight: 97.5234 kg

DRUGS (1)
  1. CHANTIX [Suspect]
     Indication: SMOKING CESSATION THERAPY
     Dosage: 1MG X2 DAILY PO
     Route: 048
     Dates: start: 20080110, end: 20080127

REACTIONS (8)
  - ABNORMAL DREAMS [None]
  - ANHEDONIA [None]
  - ANXIETY [None]
  - HYPOAESTHESIA [None]
  - MAJOR DEPRESSION [None]
  - PANIC REACTION [None]
  - SLEEP DISORDER [None]
  - SOCIAL PROBLEM [None]
